FAERS Safety Report 11647861 (Version 1)
Quarter: 2015Q4

REPORT INFORMATION
  Report Type: Spontaneous
  Country: US (occurrence: None)
  Receive Date: 20151020
  Receipt Date: 20151020
  Transmission Date: 20160304
  Serious: Yes (Disabling)
  Sender: FDA-Public Use
  Company Number: None

PATIENT
  Age: 69 Year
  Sex: Female
  Weight: 99.79 kg

DRUGS (2)
  1. CELECOXIB 200MG APOTEX CORP. [Suspect]
     Active Substance: CELECOXIB
     Indication: PAIN
     Route: 048
  2. CELECOXIB 200MG APOTEX CORP. [Suspect]
     Active Substance: CELECOXIB
     Indication: ARTHRITIS
     Route: 048

REACTIONS (3)
  - Back pain [None]
  - Product substitution issue [None]
  - Pain in extremity [None]

NARRATIVE: CASE EVENT DATE: 20151001
